FAERS Safety Report 7784991-7 (Version None)
Quarter: 2011Q3

REPORT INFORMATION
  Report Type: 
  Country: None (occurrence: None)
  Receive Date: 20110928
  Receipt Date: 20110923
  Transmission Date: 20111222
  Serious: Yes (Death, Other)
  Sender: FDA-Public Use
  Company Number: PHHY2011US67070

PATIENT
  Sex: Male

DRUGS (6)
  1. COUMADIN [Concomitant]
     Indication: PULMONARY EMBOLISM
     Dosage: UNK UKN, UNK
     Route: 048
     Dates: start: 20110406
  2. FOLIC ACID [Concomitant]
     Indication: NATURAL KILLER-CELL LEUKAEMIA
     Dosage: 1 MG, QD
     Route: 065
     Dates: start: 20100101
  3. PREDNISONE [Concomitant]
     Indication: NATURAL KILLER-CELL LEUKAEMIA
     Dosage: 5 MG, QD
     Route: 065
     Dates: start: 20100101
  4. CYCLOSPORINE [Concomitant]
     Indication: NATURAL KILLER-CELL LEUKAEMIA
     Dosage: 50 MG, QD
     Route: 065
     Dates: start: 20100101
  5. EXJADE [Suspect]
     Indication: IRON OVERLOAD
     Dosage: 2000 MG, QD
     Route: 048
     Dates: start: 20100101
  6. VESICARE [Concomitant]
     Indication: BLADDER DISORDER
     Dosage: 10 MG, QD
     Route: 065
     Dates: start: 20110101

REACTIONS (4)
  - DEATH [None]
  - HAEMOGLOBIN DECREASED [None]
  - DYSPNOEA [None]
  - CHEST PAIN [None]
